FAERS Safety Report 7056195-7 (Version None)
Quarter: 2010Q4

REPORT INFORMATION
  Report Type: 
  Country: None (occurrence: None)
  Receive Date: 20101018
  Receipt Date: 20100927
  Transmission Date: 20110411
  Serious: No
  Sender: FDA-Public Use
  Company Number: 2010-00852

PATIENT
  Age: 54 Year
  Sex: Male
  Weight: 131.5431 kg

DRUGS (6)
  1. ZICAM COLD REMEDY ZAVORS [Suspect]
     Dosage: EVERY 3 HOURS X 7 DAYS
     Dates: start: 20100921, end: 20100927
  2. ZICAM COLD REMEDY CHEWABLES [Suspect]
     Dosage: EVERY 3 HOURS X 2 DAYS
     Dates: start: 20100926, end: 20100927
  3. ZICAM INTENSE SINUS RELIEF [Suspect]
     Dosage: QD, 3 DAYS
     Dates: start: 20100923, end: 20100925
  4. JANUVIA [Concomitant]
  5. MELOXICAM [Concomitant]
  6. MUCINEX [Concomitant]

REACTIONS (2)
  - AGEUSIA [None]
  - ANOSMIA [None]
